FAERS Safety Report 22234875 (Version 3)
Quarter: 2023Q2

REPORT INFORMATION
  Report Type: Spontaneous
  Country: AT (occurrence: AT)
  Receive Date: 20230420
  Receipt Date: 20230530
  Transmission Date: 20230722
  Serious: Yes (Hospitalization)
  Sender: FDA-Public Use
  Company Number: AT-PFIZER INC-PV202300071542

PATIENT
  Sex: Male

DRUGS (2)
  1. HALCION [Interacting]
     Active Substance: TRIAZOLAM
     Dosage: UNK
  2. PAXLOVID [Interacting]
     Active Substance: NIRMATRELVIR\RITONAVIR
     Indication: COVID-19 treatment
     Dosage: UNK

REACTIONS (3)
  - Contraindicated product administered [Unknown]
  - Drug interaction [Unknown]
  - Overdose [Unknown]
